FAERS Safety Report 4884491-8 (Version None)
Quarter: 2006Q1

REPORT INFORMATION
  Report Type: 
  Country: None (occurrence: None)
  Receive Date: 20060117
  Receipt Date: 20060104
  Transmission Date: 20060701
  Serious: Yes (Hospitalization, Other)
  Sender: FDA-Public Use
  Company Number: 2006AL000049

PATIENT
  Age: 10 Year
  Sex: Female

DRUGS (1)
  1. CARBAMAZEPINE [Suspect]
     Indication: CONVULSION
     Dosage: 100 MG; BID; PO
     Route: 048

REACTIONS (13)
  - ACIDOSIS [None]
  - ANAEMIA [None]
  - CARDIOPULMONARY FAILURE [None]
  - HYPOTENSION [None]
  - HYPOXIA [None]
  - INTESTINAL HAEMORRHAGE [None]
  - NEUTROPENIA [None]
  - PETECHIAE [None]
  - PLEURAL EFFUSION [None]
  - PYREXIA [None]
  - RESPIRATORY TRACT HAEMORRHAGE [None]
  - THROMBOCYTOPENIA [None]
  - TOXIC EPIDERMAL NECROLYSIS [None]
